FAERS Safety Report 4634242-7 (Version None)
Quarter: 2005Q2

REPORT INFORMATION
  Report Type: 
  Country: None (occurrence: None)
  Receive Date: 20050413
  Receipt Date: 20050304
  Transmission Date: 20051028
  Serious: Yes (Death, Other)
  Sender: FDA-Public Use
  Company Number: PHBS2005JP03257

PATIENT
  Age: 70 Year
  Sex: Female
  Weight: 57 kg

DRUGS (10)
  1. SANDOSTATIN LAR [Suspect]
     Indication: ACROMEGALY
     Dosage: 20 MG/DAY
     Route: 030
     Dates: start: 20041215, end: 20050210
  2. LOCHOL [Concomitant]
     Indication: HYPERLIPIDAEMIA
     Dosage: 20 MG/DAY
     Route: 048
     Dates: start: 20010423, end: 20050301
  3. BASEN [Concomitant]
     Indication: DIABETES MELLITUS
     Dosage: 0.9 MG/DAY
     Route: 048
     Dates: start: 19961216, end: 20050301
  4. MELBIN [Concomitant]
     Indication: DIABETES MELLITUS
     Dosage: 750 MG/DAY
     Route: 048
     Dates: start: 20000925, end: 20050301
  5. ACTOS [Concomitant]
     Indication: DIABETES MELLITUS
     Dosage: 30 MG/DAY
     Route: 048
     Dates: start: 20010326, end: 20050301
  6. RABEPRAZOLE SODIUM [Concomitant]
     Indication: OTITIS MEDIA
     Dosage: 10 MG/DAY
     Route: 048
     Dates: start: 20030901, end: 20050301
  7. THYRADIN S [Concomitant]
     Indication: HYPOTHYROIDISM
     Dosage: 125 MG/DAY
     Route: 048
     Dates: start: 20031001, end: 20050301
  8. NOVORAPID [Concomitant]
     Indication: DIABETES MELLITUS
     Route: 058
     Dates: start: 20030421, end: 20050301
  9. NOVOLIN N [Concomitant]
     Indication: DIABETES MELLITUS
     Route: 058
     Dates: start: 20030421, end: 20050301
  10. MEIACT [Concomitant]
     Indication: OTITIS MEDIA
     Dosage: 300 MG/DAY
     Route: 048
     Dates: start: 20050224, end: 20050301

REACTIONS (15)
  - BACK PAIN [None]
  - BLOOD PRESSURE SYSTOLIC INCREASED [None]
  - C-REACTIVE PROTEIN INCREASED [None]
  - DEPRESSED LEVEL OF CONSCIOUSNESS [None]
  - HYDRONEPHROSIS [None]
  - MOVEMENT DISORDER [None]
  - PNEUMOCOCCAL INFECTION [None]
  - PNEUMOCOCCAL SEPSIS [None]
  - PYELONEPHRITIS [None]
  - RESPIRATORY ARREST [None]
  - RESUSCITATION [None]
  - TONIC CONVULSION [None]
  - URINARY RETENTION [None]
  - VENTRICULAR FIBRILLATION [None]
  - WHITE BLOOD CELL COUNT INCREASED [None]
